FAERS Safety Report 15370982 (Version 1)
Quarter: 2018Q3

REPORT INFORMATION
  Report Type: Spontaneous
  Country: US (occurrence: US)
  Receive Date: 20180905
  Receipt Date: 20180905
  Transmission Date: 20181010
  Serious: Yes (Other)
  Sender: FDA-Public Use
  Company Number: None

PATIENT
  Age: 59 Year
  Sex: Female

DRUGS (1)
  1. REPATHA [Suspect]
     Active Substance: EVOLOCUMAB
     Route: 058
     Dates: start: 20180626, end: 20180827

REACTIONS (3)
  - Abdominal pain upper [None]
  - Gastrointestinal inflammation [None]
  - Fatigue [None]

NARRATIVE: CASE EVENT DATE: 20180827
